FAERS Safety Report 5861846-6 (Version None)
Quarter: 2008Q3

REPORT INFORMATION
  Report Type: 
  Country: None (occurrence: None)
  Receive Date: 20080827
  Receipt Date: 20080716
  Transmission Date: 20090109
  Serious: No
  Sender: FDA-Public Use
  Company Number: US-ABBOTT-08P-163-0463090-00

PATIENT
  Age: 53 Year
  Sex: Female
  Weight: 65.376 kg

DRUGS (2)
  1. NIASPAN [Suspect]
     Indication: BLOOD CHOLESTEROL INCREASED
     Route: 048
     Dates: start: 20080601, end: 20080701
  2. DIOVAN HCT [Concomitant]
     Indication: HYPERTENSION
     Route: 048

REACTIONS (1)
  - BLOOD GLUCOSE INCREASED [None]
